FAERS Safety Report 5105331-8 (Version None)
Quarter: 2006Q3

REPORT INFORMATION
  Report Type: 
  Country: None (occurrence: None)
  Receive Date: 20060915
  Receipt Date: 20060906
  Transmission Date: 20061208
  Serious: Yes (Other)
  Sender: FDA-Public Use
  Company Number: PHBS2006JP13699

PATIENT
  Age: 90 Year
  Sex: Male

DRUGS (9)
  1. LAMISIL [Suspect]
     Indication: NAIL TINEA
     Dosage: 125 MG/DAY
     Route: 048
     Dates: start: 20060701, end: 20060801
  2. NITRAZEPAM [Concomitant]
  3. CARDENALIN [Concomitant]
  4. ADALAT - SLOW RELEASE [Concomitant]
     Route: 048
  5. URIEF [Concomitant]
  6. CETILO [Concomitant]
  7. PURSENNID [Concomitant]
     Route: 048
  8. CYSCARBON [Concomitant]
  9. GLYCERIN [Concomitant]
     Route: 054

REACTIONS (3)
  - BLOOD CREATINE PHOSPHOKINASE INCREASED [None]
  - MOBILITY DECREASED [None]
  - RHABDOMYOLYSIS [None]
